FAERS Safety Report 5776024-9 (Version None)
Quarter: 2008Q2

REPORT INFORMATION
  Report Type: 
  Country: None (occurrence: None)
  Receive Date: 20080617
  Receipt Date: 20080611
  Transmission Date: 20081010
  Serious: Yes (Hospitalization)
  Sender: FDA-Public Use
  Company Number: FR-MERCK-0805FRA00040

PATIENT
  Age: 75 Year
  Sex: Female

DRUGS (6)
  1. HYZAAR [Suspect]
     Indication: HYPERTENSION
     Route: 048
     Dates: end: 20080410
  2. SERTRALINE HYDROCHLORIDE [Suspect]
     Route: 048
     Dates: end: 20080410
  3. FUROSEMIDE [Suspect]
     Indication: HYPERTENSION
     Route: 048
     Dates: end: 20080411
  4. PRAVASTATIN SODIUM [Concomitant]
     Indication: DYSLIPIDAEMIA
     Route: 048
  5. BACLOFEN [Concomitant]
     Route: 048
  6. ATENOLOL [Concomitant]
     Route: 048

REACTIONS (1)
  - PEMPHIGOID [None]
